FAERS Safety Report 9030763 (Version 4)
Quarter: 2013Q1

REPORT INFORMATION
  Report Type: Report from Study
  Country: DE (occurrence: DE)
  Receive Date: 20130123
  Receipt Date: 20130212
  Transmission Date: 20140127
  Serious: Yes (Other)
  Sender: FDA-Public Use
  Company Number: DE-ROCHE-1178876

PATIENT
  Age: 53 Year
  Sex: Female
  Weight: 95 kg

DRUGS (11)
  1. TRASTUZUMAB [Suspect]
     Indication: BREAST CANCER
     Dosage: LAST DOSE WAS PRIOR TO SAE:27/DEC/2012
     Route: 042
     Dates: start: 20121205
  2. MYOCET [Suspect]
     Indication: BREAST CANCER
     Dosage: LAST DOSE WAS PRIOR TO SAE:02/JAN/2013
     Route: 042
     Dates: start: 20121205, end: 20130109
  3. PACLITAXEL [Suspect]
     Indication: BREAST CANCER
     Dosage: LAST DOSE WAS PRIOR TO SAE:02/JAN/2013
     Route: 042
     Dates: start: 20121205, end: 20130109
  4. PACLITAXEL [Suspect]
     Route: 042
     Dates: start: 20130123
  5. LAPATINIB [Suspect]
     Indication: BREAST CANCER
     Route: 048
     Dates: start: 20121205
  6. LAPATINIB [Suspect]
     Dosage: LAST DOSE PRIOR TO SAE: 09/JAN/2013
     Route: 048
     Dates: start: 20121229
  7. LOPEDIUM [Concomitant]
     Route: 065
     Dates: start: 20121205
  8. RAMIPRIL [Concomitant]
     Dosage: DAILY DOSE: 5/25 MG
     Route: 065
  9. OMEPRAZOLE [Concomitant]
     Route: 065
     Dates: start: 20121212
  10. UNGUENTUM LENIENS [Concomitant]
     Indication: PSORIASIS
     Route: 065
     Dates: start: 20121227
  11. BEPANTHEN SALBE [Concomitant]
     Indication: DRY SKIN
     Route: 065
     Dates: start: 20121227

REACTIONS (1)
  - Cutis laxa [Recovered/Resolved]
